FAERS Safety Report 9498355 (Version 2)
Quarter: 2013Q3

REPORT INFORMATION
  Report Type: Spontaneous
  Country: GR (occurrence: GR)
  Receive Date: 20130904
  Receipt Date: 20130904
  Transmission Date: 20140515
  Serious: Yes (Other)
  Sender: FDA-Public Use
  Company Number: GR-ACTAVIS-2013-14139

PATIENT
  Age: 32 Year
  Sex: Male

DRUGS (3)
  1. TOPIRAMATE (UNKNOWN) [Suspect]
     Indication: PARTIAL SEIZURES WITH SECONDARY GENERALISATION
     Dosage: 150 MG, BID
     Route: 065
  2. TOPIRAMATE (UNKNOWN) [Suspect]
     Dosage: 25MG DAILY TITRATERD BY 25 MG EVERY WEEK UP TO 300 MG DAILY
     Route: 065
  3. OXCARBAZEPINE [Concomitant]
     Indication: PARTIAL SEIZURES WITH SECONDARY GENERALISATION
     Dosage: 2400 MG, DAILY
     Route: 065

REACTIONS (2)
  - Hypohidrosis [Recovered/Resolved]
  - Hyperthermia [Recovered/Resolved]
